FAERS Safety Report 5266248-1 (Version None)
Quarter: 2007Q1

REPORT INFORMATION
  Report Type: 
  Country: None (occurrence: None)
  Receive Date: 20070315
  Receipt Date: 20070309
  Transmission Date: 20070707
  Serious: Yes (Other)
  Sender: FDA-Public Use
  Company Number: IT-GLAXOSMITHKLINE-B0461864A

PATIENT

DRUGS (3)
  1. ZEFFIX [Suspect]
     Indication: HEPATITIS B VIRUS
     Route: 048
  2. AMIODARONE HYDROCHLORIDE [Concomitant]
     Route: 048
  3. AMIODARONE HYDROCHLORIDE [Concomitant]
     Route: 042

REACTIONS (1)
  - ATRIAL FIBRILLATION [None]
